FAERS Safety Report 8560923-9 (Version None)
Quarter: 2012Q3

REPORT INFORMATION
  Report Type: 
  Country: None (occurrence: None)
  Receive Date: 20120727
  Receipt Date: 20120727
  Transmission Date: 20120928
  Serious: Yes (Hospitalization)
  Sender: FDA-Public Use
  Company Number: None

PATIENT
  Age: 68 Year
  Sex: Male
  Weight: 74.9 kg

DRUGS (24)
  1. FINASTERIDE [Concomitant]
  2. APAP TAB [Concomitant]
  3. VITAMIN D [Concomitant]
  4. NOVOLOG [Concomitant]
  5. RAMIPRIL [Concomitant]
  6. FLOMAX [Concomitant]
  7. POTASSIUM CHLORIDE [Concomitant]
  8. ZANTAC [Concomitant]
  9. SENNA-MINT WAF [Concomitant]
  10. PHENERGAN HCL [Suspect]
     Indication: NAUSEA
     Dosage: RECENT
  11. BACLOFEN [Concomitant]
  12. LANTUS [Concomitant]
  13. NOVOLOG SS [Concomitant]
  14. AMITIZA [Concomitant]
  15. LIDODERM [Concomitant]
  16. COLACE [Concomitant]
  17. ZOCOR [Concomitant]
  18. HYDROCODONE BITARTRATE AND ACETAMINOPHEN [Concomitant]
  19. AMLODIPINE [Concomitant]
  20. ASPIRIN [Concomitant]
  21. M.V.I. [Concomitant]
  22. LOPRESSOR [Concomitant]
  23. MIRALAX [Concomitant]
  24. OXCARBAZEPINE [Concomitant]

REACTIONS (1)
  - DYSTONIA [None]
